FAERS Safety Report 7874220-8 (Version None)
Quarter: 2011Q4

REPORT INFORMATION
  Report Type: 
  Country: None (occurrence: None)
  Receive Date: 20111030
  Receipt Date: 20110517
  Transmission Date: 20120403
  Serious: No
  Sender: FDA-Public Use
  Company Number: US-AMGEN-USASP2011025426

PATIENT
  Age: 67 Year
  Sex: Female

DRUGS (13)
  1. ENBREL [Suspect]
     Indication: RHEUMATOID ARTHRITIS
     Dosage: 50 MG, QWK
     Dates: start: 20100101
  2. OMEPRAZOLE [Concomitant]
     Dosage: 2 MG, QD
  3. METHOTREXATE [Concomitant]
     Dosage: 7 MG, QWK
  4. SINGULAIR [Concomitant]
     Dosage: 1 MG, QD
  5. DIFLUNISAL [Concomitant]
     Dosage: 3 MG, QD
  6. VITAMIN D [Concomitant]
     Dosage: 2 IU, QD
  7. VESICARE [Concomitant]
     Dosage: 1 MG, QD
  8. VITAMIN E                          /00110501/ [Concomitant]
     Dosage: 1 IU, QD
  9. LIPITOR [Concomitant]
     Dosage: 1 MG, QD
  10. SERTRALINE HYDROCHLORIDE [Concomitant]
     Dosage: 1 MG, QD
  11. AMLODIPINE [Concomitant]
     Dosage: 1 MG, QD
  12. CALCIUM CITRATE [Concomitant]
     Dosage: 1 MG, QD
  13. FOLIC ACID [Concomitant]
     Dosage: 2 MG, QWK

REACTIONS (2)
  - EAR INFECTION [None]
  - PARAESTHESIA [None]
